FAERS Safety Report 24662983 (Version 1)
Quarter: 2024Q4

REPORT INFORMATION
  Report Type: Spontaneous
  Country: US (occurrence: US)
  Receive Date: 20241126
  Receipt Date: 20241126
  Transmission Date: 20250115
  Serious: Yes (Other)
  Sender: Unknown Manufacturer
  Company Number: US-KOANAAP-SML-US-2024-01144

PATIENT
  Age: 72 Year
  Sex: Male

DRUGS (14)
  1. GEMCITABINE [Suspect]
     Active Substance: GEMCITABINE
     Indication: Transitional cell carcinoma metastatic
  2. GEMCITABINE [Suspect]
     Active Substance: GEMCITABINE
     Indication: Squamous cell carcinoma
  3. PACLITAXEL [Suspect]
     Active Substance: PACLITAXEL
     Indication: Transitional cell carcinoma metastatic
  4. PACLITAXEL [Suspect]
     Active Substance: PACLITAXEL
     Indication: Squamous cell carcinoma
  5. IFOSFAMIDE [Suspect]
     Active Substance: IFOSFAMIDE
     Indication: Transitional cell carcinoma metastatic
  6. IFOSFAMIDE [Suspect]
     Active Substance: IFOSFAMIDE
     Indication: Squamous cell carcinoma
  7. CISPLATIN [Suspect]
     Active Substance: CISPLATIN
     Indication: Transitional cell carcinoma metastatic
  8. CISPLATIN [Suspect]
     Active Substance: CISPLATIN
     Indication: Squamous cell carcinoma
  9. OLAPARIB [Suspect]
     Active Substance: OLAPARIB
     Indication: Transitional cell carcinoma metastatic
  10. OLAPARIB [Suspect]
     Active Substance: OLAPARIB
     Indication: Squamous cell carcinoma
  11. DURVALUMAB [Suspect]
     Active Substance: DURVALUMAB
     Indication: Transitional cell carcinoma metastatic
  12. DURVALUMAB [Suspect]
     Active Substance: DURVALUMAB
     Indication: Squamous cell carcinoma
  13. TREMELIMUMAB [Suspect]
     Active Substance: TREMELIMUMAB
     Indication: Transitional cell carcinoma metastatic
  14. TREMELIMUMAB [Suspect]
     Active Substance: TREMELIMUMAB
     Indication: Squamous cell carcinoma

REACTIONS (2)
  - Drug ineffective [Unknown]
  - Disease progression [Unknown]
